FAERS Safety Report 4282369-4 (Version None)
Quarter: 2004Q1

REPORT INFORMATION
  Report Type: 
  Country: None (occurrence: None)
  Receive Date: 20040114
  Receipt Date: 20030127
  Transmission Date: 20041129
  Serious: Yes (Other)
  Sender: FDA-Public Use
  Company Number: PHEH2003US01053

PATIENT
  Age: 47 Year
  Sex: Male

DRUGS (10)
  1. SANDOSTATIN LAR [Suspect]
     Indication: ACROMEGALY
     Dosage: 30 MG, QMO
     Dates: start: 19990601
  2. THYROID TAB [Concomitant]
  3. PARLODEL [Concomitant]
  4. NORVASC [Concomitant]
  5. MICARDIS [Concomitant]
  6. HYDROCHLOROTHIAZIDE [Concomitant]
  7. OXYCONTIN [Concomitant]
  8. PERCOCET (OXYCOCONE HYDROCHLORIDE) [Concomitant]
  9. ANDROGEL [Concomitant]
  10. HYDROCORTISONE [Concomitant]

REACTIONS (4)
  - ANXIETY [None]
  - DEPRESSION [None]
  - FIBROMYALGIA [None]
  - INJECTION SITE REACTION [None]
